FAERS Safety Report 14636602 (Version 2)
Quarter: 2018Q2

REPORT INFORMATION
  Report Type: Spontaneous
  Country: BR (occurrence: BR)
  Receive Date: 20180314
  Receipt Date: 20180427
  Transmission Date: 20180711
  Serious: Yes (Hospitalization, Other)
  Sender: FDA-Public Use
  Company Number: BR-PFIZER INC-2018017300

PATIENT
  Age: 57 Year
  Sex: Male

DRUGS (3)
  1. DONAREN XR [Concomitant]
     Dosage: UNK
     Dates: start: 201801
  2. FRONTAL XR [Suspect]
     Active Substance: ALPRAZOLAM
     Indication: PANIC DISORDER
     Dosage: 2 MG, 3X/DAY ( 2MG IN THE MORNING, 2MG IN THE AFTERNOON AND 2 MG AT NIGHT, DAILY)
     Dates: start: 201611
  3. FRONTAL XR [Suspect]
     Active Substance: ALPRAZOLAM
     Indication: ANXIETY
     Dosage: 2 MG IN THE MORNING, 1.5 MG IN THE AFTERNOON AND 2 MG IN THE EVENING, DAILY
     Dates: start: 20180305

REACTIONS (5)
  - Drug ineffective [Not Recovered/Not Resolved]
  - Drug dependence [Not Recovered/Not Resolved]
  - Withdrawal syndrome [Not Recovered/Not Resolved]
  - Suicidal ideation [Not Recovered/Not Resolved]
  - Hyperhidrosis [Not Recovered/Not Resolved]

NARRATIVE: CASE EVENT DATE: 201611
